FAERS Safety Report 13939446 (Version 1)
Quarter: 2017Q3

REPORT INFORMATION
  Report Type: Spontaneous
  Country: US (occurrence: US)
  Receive Date: 20170906
  Receipt Date: 20170906
  Transmission Date: 20171127
  Serious: No
  Sender: FDA-Public Use
  Company Number: US-PFIZER INC-2017377764

PATIENT
  Age: 80 Year
  Sex: Male

DRUGS (3)
  1. GENOTROPIN MQ [Suspect]
     Active Substance: SOMATROPIN
     Indication: OSTEOARTHRITIS
     Dosage: 0.6 MG, DAILY
  2. GENOTROPIN MQ [Suspect]
     Active Substance: SOMATROPIN
     Indication: MUSCULOSKELETAL PAIN
  3. NYSTATIN. [Concomitant]
     Active Substance: NYSTATIN
     Dosage: UNK UNK, 2X/DAY(1 TUBE, 30 GRAM 1 YEAR REFILL)

REACTIONS (5)
  - Product use in unapproved indication [Unknown]
  - Arthralgia [Unknown]
  - Joint range of motion decreased [Unknown]
  - Headache [Unknown]
  - Injection site pain [Unknown]
